FAERS Safety Report 8783813 (Version 1)
Quarter: 2012Q4

REPORT INFORMATION
  Report Type: Spontaneous
  Country: US (occurrence: None)
  Receive Date: 20120906
  Receipt Date: 20120906
  Transmission Date: 20130627
  Serious: Yes (Life-Threatening, Hospitalization)
  Sender: FDA-Public Use
  Company Number: None

PATIENT
  Age: 33 Year
  Sex: Male
  Weight: 149.9 kg

DRUGS (1)
  1. OPANA [Suspect]
     Indication: ILL-DEFINED DISORDER
     Dosage: Dates of Use:  ^a long time^
Frequency: 2-3 times per day
     Route: 042

REACTIONS (1)
  - Thrombotic thrombocytopenic purpura [None]
